FAERS Safety Report 6933404-3 (Version None)
Quarter: 2010Q3

REPORT INFORMATION
  Report Type: 
  Country: None (occurrence: None)
  Receive Date: 20100820
  Receipt Date: 20100816
  Transmission Date: 20110219
  Serious: Yes (Death)
  Sender: FDA-Public Use
  Company Number: US-CELGENEUS-163-21880-10081320

PATIENT
  Sex: Male

DRUGS (2)
  1. REVLIMID [Suspect]
     Indication: MULTIPLE MYELOMA
     Route: 048
     Dates: start: 20080201, end: 20080301
  2. REVLIMID [Suspect]
     Route: 048
     Dates: start: 20080301, end: 20080401

REACTIONS (3)
  - ASTHENIA [None]
  - CONSTIPATION [None]
  - DEATH [None]
